FAERS Safety Report 9860928 (Version 1)
Quarter: 2014Q1

REPORT INFORMATION
  Report Type: Spontaneous
  Country: US (occurrence: None)
  Receive Date: 20140131
  Receipt Date: 20140131
  Transmission Date: 20141002
  Serious: Yes (Other)
  Sender: FDA-Public Use
  Company Number: None

PATIENT
  Age: 54 Year
  Sex: Male
  Weight: 89.81 kg

DRUGS (3)
  1. AZITHROMYCIN, UNSPECIFIED FORM [Suspect]
     Indication: OROPHARYNGEAL PAIN
     Dosage: TAKEN BY MOUTH
     Dates: start: 20140124, end: 20140128
  2. AZITHROMYCIN, UNSPECIFIED FORM [Suspect]
     Indication: COUGH
     Dosage: TAKEN BY MOUTH
     Dates: start: 20140124, end: 20140128
  3. AZITHROMYCIN, UNSPECIFIED FORM [Suspect]
     Indication: LARYNGITIS
     Dosage: TAKEN BY MOUTH
     Dates: start: 20140124, end: 20140128

REACTIONS (2)
  - Tinnitus [None]
  - Hypoacusis [None]
